FAERS Safety Report 9370684 (Version 3)
Quarter: 2013Q3

REPORT INFORMATION
  Report Type: Report from Study
  Country: CA (occurrence: CA)
  Receive Date: 20130626
  Receipt Date: 20130904
  Transmission Date: 20140515
  Serious: Yes (Hospitalization)
  Sender: FDA-Public Use
  Company Number: CA-ABBOTT-13P-028-1108913-00

PATIENT
  Sex: Male
  Weight: 61.5 kg

DRUGS (2)
  1. HUMIRA [Suspect]
     Indication: CROHN^S DISEASE
     Route: 058
     Dates: start: 20120618
  2. PREDNISONE [Concomitant]
     Indication: CROHN^S DISEASE
     Route: 048

REACTIONS (4)
  - Intestinal obstruction [Recovering/Resolving]
  - Intestinal stenosis [Unknown]
  - Unevaluable event [Unknown]
  - Pain [Not Recovered/Not Resolved]
